FAERS Safety Report 6652856-X (Version None)
Quarter: 2010Q1

REPORT INFORMATION
  Report Type: 
  Country: None (occurrence: None)
  Receive Date: 20100326
  Receipt Date: 20100319
  Transmission Date: 20100710
  Serious: Yes (Other)
  Sender: FDA-Public Use
  Company Number: FR-KINGPHARMUSA00001-K201000329

PATIENT
  Age: 79 Year
  Sex: Male

DRUGS (9)
  1. INTAL [Suspect]
     Dosage: 4 DF, QD
  2. EC DOPARL [Concomitant]
  3. SYMMETREL [Concomitant]
  4. OMEPRAL [Concomitant]
  5. SELEGILINE HYDROCHLORIDE [Concomitant]
  6. MAGLAX [Concomitant]
  7. BISOLVON [Concomitant]
  8. ERYTHROMYCIN [Concomitant]
  9. AMOBAN [Concomitant]

REACTIONS (3)
  - BLOOD PRESSURE DECREASED [None]
  - DIARRHOEA [None]
  - PNEUMONIA [None]
